FAERS Safety Report 6382357-8 (Version None)
Quarter: 2009Q3

REPORT INFORMATION
  Report Type: 
  Country: None (occurrence: None)
  Receive Date: 20090930
  Receipt Date: 20090917
  Transmission Date: 20100115
  Serious: Yes (Hospitalization)
  Sender: FDA-Public Use
  Company Number: JP-PFIZER INC-2009257342

PATIENT
  Age: 24 Year

DRUGS (3)
  1. ZITHROMAX [Suspect]
     Indication: ACUTE TONSILLITIS
     Dosage: 500 MG, 1X/DAY
     Route: 048
     Dates: start: 20090801, end: 20090802
  2. CRAVIT [Suspect]
     Indication: ACUTE TONSILLITIS
     Dosage: 100 MG, 2X/DAY
     Route: 048
     Dates: start: 20090728, end: 20090728
  3. ROCEPHIN [Suspect]
     Indication: ACUTE TONSILLITIS
     Dosage: 2 G, 1X/DAY
     Route: 042
     Dates: start: 20090729, end: 20090731

REACTIONS (1)
  - COLITIS [None]
